FAERS Safety Report 5427492-3 (Version None)
Quarter: 2007Q3

REPORT INFORMATION
  Report Type: 
  Country: None (occurrence: None)
  Receive Date: 20070824
  Receipt Date: 20070824
  Transmission Date: 20080115
  Serious: Yes (Life-Threatening, Hospitalization, Disabling, Other)
  Sender: FDA-Public Use
  Company Number: None

PATIENT
  Age: 69 Year
  Sex: Male
  Weight: 90.7194 kg

DRUGS (1)
  1. GENTAMICIN [Suspect]
     Indication: PSEUDOMONAS INFECTION
     Dosage: 450 MG DAILY IV DRIP
     Route: 041
     Dates: start: 20070629, end: 20070708

REACTIONS (5)
  - ABASIA [None]
  - BALANCE DISORDER [None]
  - DIALYSIS [None]
  - INNER EAR DISORDER [None]
  - RENAL FAILURE [None]
